FAERS Safety Report 8489198-6 (Version None)
Quarter: 2012Q3

REPORT INFORMATION
  Report Type: 
  Country: None (occurrence: None)
  Receive Date: 20120705
  Receipt Date: 20120626
  Transmission Date: 20120928
  Serious: Yes (Hospitalization)
  Sender: FDA-Public Use
  Company Number: US-VERTEX PHARMACEUTICALS INC.-AE-2012-007695

PATIENT
  Sex: Female
  Weight: 88.45 kg

DRUGS (7)
  1. RIBAVIRIN [Concomitant]
     Indication: HEPATITIS C
     Route: 048
     Dates: start: 20120507, end: 20120610
  2. PRILOSEC [Concomitant]
  3. LACTULOSE [Concomitant]
  4. CALCIUM [Concomitant]
     Indication: MEDICAL DIET
  5. INCIVEK [Suspect]
     Indication: HEPATITIS C
     Route: 048
     Dates: start: 20120507, end: 20120610
  6. PEGASYS [Concomitant]
     Indication: HEPATITIS C
     Route: 058
     Dates: start: 20120507, end: 20120610
  7. PROCARDIA XL [Concomitant]

REACTIONS (12)
  - HAEMOGLOBIN DECREASED [None]
  - DEPRESSION [None]
  - BLOOD POTASSIUM DECREASED [None]
  - CONSTIPATION [None]
  - IRRITABILITY [None]
  - PAIN IN EXTREMITY [None]
  - DECREASED APPETITE [None]
  - VOMITING [None]
  - WHITE BLOOD CELL COUNT DECREASED [None]
  - CHILLS [None]
  - FATIGUE [None]
  - SENSATION OF FOREIGN BODY [None]
